FAERS Safety Report 23760643 (Version 2)
Quarter: 2024Q2

REPORT INFORMATION
  Report Type: Spontaneous
  Country: FR (occurrence: FR)
  Receive Date: 20240419
  Receipt Date: 20240528
  Transmission Date: 20240716
  Serious: Yes (Death)
  Sender: FDA-Public Use
  Company Number: FR-CHIESI-2024CHF02060

PATIENT
  Sex: Male

DRUGS (3)
  1. CANGRELOR [Suspect]
     Active Substance: CANGRELOR
     Indication: Intracranial aneurysm
     Dosage: UNK
     Route: 042
  2. CANGRELOR [Suspect]
     Active Substance: CANGRELOR
     Indication: Off label use
  3. PLAVIX [Suspect]
     Active Substance: CLOPIDOGREL BISULFATE
     Indication: Product used for unknown indication
     Dosage: UNK
     Route: 048

REACTIONS (4)
  - Vascular stent thrombosis [Fatal]
  - Drug interaction [Fatal]
  - Off label use [Unknown]
  - Off label use [Unknown]
